FAERS Safety Report 6207044-8 (Version None)
Quarter: 2009Q2

REPORT INFORMATION
  Report Type: 
  Country: None (occurrence: None)
  Receive Date: 20090521
  Receipt Date: 20090123
  Transmission Date: 20091009
  Serious: Yes (Hospitalization, Other)
  Sender: FDA-Public Use
  Company Number: 2007BH004460

PATIENT
  Age: 56 Year
  Sex: Female
  Weight: 56.246 kg

DRUGS (22)
  1. CYTOXAN [Suspect]
     Indication: BREAST CANCER
     Dosage: 925 MG; EVERY 2 WK; IV, 970 MG; EVERY 2 WK; IV
     Route: 042
     Dates: start: 20070215, end: 20070215
  2. CYTOXAN [Suspect]
     Indication: BREAST CANCER
     Dosage: 925 MG; EVERY 2 WK; IV, 970 MG; EVERY 2 WK; IV
     Route: 042
     Dates: start: 20070130
  3. ADRIAMYCIN RDF [Suspect]
     Indication: BREAST CANCER
     Dosage: 92 MG; EVERY 2 WK; IVDRI 100 MG; EVERY 2 WK; IVDRI
     Route: 041
     Dates: start: 20070130, end: 20070130
  4. ADRIAMYCIN RDF [Suspect]
     Indication: BREAST CANCER
     Dosage: 92 MG; EVERY 2 WK; IVDRI 100 MG; EVERY 2 WK; IVDRI
     Route: 041
     Dates: start: 20070215, end: 20070215
  5. BEVACIZUMAB [Suspect]
     Indication: BREAST CANCER
     Dosage: 570 MG; EVERY 2 WK; IVDRI, 615 MG; EVERY 2 WK; IVDRI
     Route: 041
     Dates: start: 20070215, end: 20070215
  6. BEVACIZUMAB [Suspect]
     Indication: BREAST CANCER
     Dosage: 570 MG; EVERY 2 WK; IVDRI, 615 MG; EVERY 2 WK; IVDRI
     Route: 041
     Dates: start: 20070130
  7. NEULASTA [Suspect]
     Indication: BREAST CANCER
     Dosage: 6 MG; EVERY 2 WK; SC, 6 MG; EVERY 2 HR; SC
     Route: 058
     Dates: start: 20070216, end: 20070216
  8. NEULASTA [Suspect]
     Indication: BREAST CANCER
     Dosage: 6 MG; EVERY 2 WK; SC, 6 MG; EVERY 2 HR; SC
     Route: 058
     Dates: start: 20070131
  9. LEVAQUIN [Concomitant]
  10. ALOXI [Concomitant]
  11. DECADRON [Concomitant]
  12. OXYGEN [Concomitant]
  13. MICARDIS [Concomitant]
  14. PHENERGAN [Concomitant]
  15. COMPAZINE [Concomitant]
  16. COMBIVENT [Concomitant]
  17. CLARITIN-D [Concomitant]
  18. PROTONIX [Concomitant]
  19. POTASSIUM CHLORIDE [Concomitant]
  20. ARANESP [Concomitant]
  21. LASIX [Concomitant]
  22. LORTAB [Concomitant]

REACTIONS (6)
  - ASTHENIA [None]
  - CHILLS [None]
  - DIARRHOEA [None]
  - FEBRILE NEUTROPENIA [None]
  - NAUSEA [None]
  - VOMITING [None]
